FAERS Safety Report 9707605 (Version 1)
Quarter: 2013Q4

REPORT INFORMATION
  Report Type: Spontaneous
  Country: JP (occurrence: JP)
  Receive Date: 20131125
  Receipt Date: 20131125
  Transmission Date: 20140711
  Serious: Yes (Other)
  Sender: FDA-Public Use
  Company Number: JP-ASTRAZENECA-2013SE84529

PATIENT
  Age: 76 Year
  Sex: Male

DRUGS (2)
  1. XYLOCAINE JELLY [Suspect]
     Indication: LOCAL ANAESTHESIA
     Dosage: DOSE UNKNOWN
     Route: 049
  2. XYLOCAINE PUMP SPRAY [Suspect]
     Indication: LOCAL ANAESTHESIA
     Dosage: DOSE UNKNOWN
     Route: 049

REACTIONS (1)
  - Laryngeal oedema [Unknown]
